FAERS Safety Report 9260336 (Version 1)
Quarter: 2013Q2

REPORT INFORMATION
  Report Type: Spontaneous
  Country: US (occurrence: US)
  Receive Date: 20130429
  Receipt Date: 20130429
  Transmission Date: 20140414
  Serious: Yes (Hospitalization, Other)
  Sender: FDA-Public Use
  Company Number: PHEH2013US009104

PATIENT
  Age: 46 Year
  Sex: Female
  Weight: 54.42 kg

DRUGS (5)
  1. TRILEPTAL [Suspect]
     Dosage: 1050 MG (EVERY 8 HOURS 300 MG, 300 MG, 450 MG), DAILY
  2. TRILEPTAL [Suspect]
     Dosage: UNK UKN, UNK
  3. VIMPAT [Suspect]
     Indication: COMPLEX PARTIAL SEIZURES
     Dosage: 300 MG (150 MG AM AND 150 MG PM), DAILY
  4. VIMPAT [Suspect]
     Dosage: UNK UKN, UNK
  5. ZONEGRAN [Concomitant]
     Dosage: 400 MG (100 MG QAM AND 300 MG QPM), DAILY

REACTIONS (9)
  - Nephrolithiasis [Unknown]
  - Pain [Unknown]
  - Trance [Unknown]
  - Psychotic disorder [Unknown]
  - Convulsion [Unknown]
  - Thinking abnormal [Unknown]
  - Speech disorder [Unknown]
  - Dizziness [Unknown]
  - Somnolence [Unknown]
